FAERS Safety Report 10542576 (Version 3)
Quarter: 2015Q2

REPORT INFORMATION
  Report Type: Spontaneous
  Country: US (occurrence: US)
  Receive Date: 20140731
  Receipt Date: 20150525
  Transmission Date: 20150821
  Serious: Yes (Other)
  Sender: FDA-Public Use
  Company Number: US-JNJFOC-20140106556

PATIENT
  Age: 32 Year
  Sex: Male
  Weight: 86.18 kg

DRUGS (1)
  1. IMODIUM [Suspect]
     Active Substance: LOPERAMIDE HYDROCHLORIDE
     Indication: DRUG WITHDRAWAL SYNDROME
     Dosage: 150-200 CAPLETS
     Route: 048

REACTIONS (2)
  - Overdose [Unknown]
  - Product use issue [Unknown]
